FAERS Safety Report 5259740-7 (Version None)
Quarter: 2007Q1

REPORT INFORMATION
  Report Type: 
  Country: None (occurrence: None)
  Receive Date: 20070309
  Receipt Date: 20070306
  Transmission Date: 20070707
  Serious: Yes (Hospitalization)
  Sender: FDA-Public Use
  Company Number: 2007UW04141

PATIENT
  Age: 53 Year
  Sex: Female

DRUGS (2)
  1. SEROQUEL [Suspect]
     Route: 048
  2. LOTS OF OTHERS, TOO MANY TO COUNT [Concomitant]

REACTIONS (2)
  - OXYGEN SATURATION DECREASED [None]
  - PULMONARY FUNCTION TEST DECREASED [None]
